FAERS Safety Report 6181808-1 (Version None)
Quarter: 2009Q2

REPORT INFORMATION
  Report Type: 
  Country: None (occurrence: None)
  Receive Date: 20090506
  Receipt Date: 20090429
  Transmission Date: 20091009
  Serious: Yes (Hospitalization, Other)
  Sender: FDA-Public Use
  Company Number: PHHY2009FR15526

PATIENT
  Age: 71 Year
  Sex: Female

DRUGS (2)
  1. CERTICAN [Suspect]
     Indication: LIVER TRANSPLANT
     Dosage: 0.5 MG, BID
     Route: 048
     Dates: start: 20090205, end: 20090302
  2. CORDARONE [Suspect]
     Indication: ARRHYTHMIA
     Dosage: 200 MG, QD FIVE DAYS PER WEEK
     Route: 048
     Dates: start: 20070101, end: 20090306

REACTIONS (12)
  - ACUTE PULMONARY OEDEMA [None]
  - BRONCHOPNEUMOPATHY [None]
  - ESCHERICHIA BACTERAEMIA [None]
  - HYPOXIA [None]
  - INTERSTITIAL LUNG DISEASE [None]
  - LUNG DISORDER [None]
  - OEDEMA PERIPHERAL [None]
  - PNEUMOCYSTIS JIROVECI PNEUMONIA [None]
  - PNEUMONIA BACTERIAL [None]
  - POLYNEUROPATHY [None]
  - RENAL DISORDER [None]
  - RESPIRATORY FAILURE [None]
